FAERS Safety Report 16280094 (Version 4)
Quarter: 2019Q2

REPORT INFORMATION
  Report Type: Report from Study
  Country: None (occurrence: CH)
  Receive Date: 20190507
  Receipt Date: 20190624
  Transmission Date: 20190711
  Serious: Yes (Hospitalization)
  Sender: FDA-Public Use
  Company Number: CH-ABBVIE-19S-151-2769433-00

PATIENT
  Age: 72 Year
  Sex: Male

DRUGS (5)
  1. DUODOPA [Suspect]
     Active Substance: CARBIDOPA\LEVODOPA
     Indication: PARKINSON^S DISEASE
     Route: 050
     Dates: start: 20130618, end: 20180523
  2. DUODOPA [Suspect]
     Active Substance: CARBIDOPA\LEVODOPA
     Dosage: MD: 4.2 ML; CR DAY: 3.4 ML/H; CR NIGHT: 2.1 ML/H; ED: 2 ML
     Route: 050
     Dates: start: 20181017, end: 20190502
  3. LEPONEX [Concomitant]
     Active Substance: CLOZAPINE
     Indication: PRODUCT USED FOR UNKNOWN INDICATION
  4. DUODOPA [Suspect]
     Active Substance: CARBIDOPA\LEVODOPA
     Dosage: MD: 4.2 ML; CRDAY: 3.4 ML/H; CR NIGHT: 2.1 ML/H; ED: 0.5 ML
     Route: 050
     Dates: start: 20180523, end: 20181017
  5. DUODOPA [Suspect]
     Active Substance: CARBIDOPA\LEVODOPA
     Dosage: MD: 4.2 ML; CR DAY: 3.4 ML/H; CR NIGHT: 2.1 ML/H; ED: 2 ML
     Route: 050
     Dates: start: 20190502

REACTIONS (14)
  - Delayed recovery from anaesthesia [Recovered/Resolved]
  - Delayed recovery from anaesthesia [Recovered/Resolved]
  - Unintentional medical device removal [Recovered/Resolved]
  - Hallucination [Unknown]
  - Loss of personal independence in daily activities [Unknown]
  - Device occlusion [Unknown]
  - Device kink [Unknown]
  - Device issue [Recovered/Resolved]
  - Confusional state [Unknown]
  - Intentional product misuse [Recovered/Resolved]
  - Medical device removal [Recovered/Resolved]
  - Device issue [Unknown]
  - Drug ineffective [Unknown]
  - Insomnia [Unknown]

NARRATIVE: CASE EVENT DATE: 20190324
